FAERS Safety Report 10756895 (Version 4)
Quarter: 2015Q2

REPORT INFORMATION
  Report Type: Spontaneous
  Country: US (occurrence: US)
  Receive Date: 20150203
  Receipt Date: 20150421
  Transmission Date: 20150821
  Serious: No
  Sender: FDA-Public Use
  Company Number: US-LEO PHARMA-232187

PATIENT
  Age: 35 Year
  Sex: Female

DRUGS (1)
  1. PICATO [Suspect]
     Active Substance: INGENOL MEBUTATE
     Indication: ACTINIC KERATOSIS
     Route: 061
     Dates: start: 20141022

REACTIONS (6)
  - Application site discolouration [Unknown]
  - Drug administered at inappropriate site [Unknown]
  - Application site scar [Unknown]
  - Application site inflammation [Unknown]
  - Application site erythema [Unknown]
  - Application site scab [Recovered/Resolved]
